FAERS Safety Report 4665521-5 (Version None)
Quarter: 2005Q2

REPORT INFORMATION
  Report Type: 
  Country: None (occurrence: None)
  Receive Date: 20050519
  Receipt Date: 20040528
  Transmission Date: 20051028
  Serious: No
  Sender: FDA-Public Use
  Company Number: US-BRISTOL-MYERS SQUIBB COMPANY-12601050

PATIENT
  Age: 79 Year
  Sex: Male
  Weight: 79 kg

DRUGS (2)
  1. MITOMYCIN [Suspect]
     Indication: BLADDER CANCER
     Dosage: WEEKLY TO BI-WEEKLY
     Route: 066
     Dates: start: 20010101, end: 20040301
  2. CELEBREX [Concomitant]

REACTIONS (1)
  - BLADDER DISORDER [None]
